FAERS Safety Report 5934664-8 (Version None)
Quarter: 2008Q4

REPORT INFORMATION
  Report Type: 
  Country: None (occurrence: None)
  Receive Date: 20081029
  Receipt Date: 20081020
  Transmission Date: 20090506
  Serious: Yes (Hospitalization)
  Sender: FDA-Public Use
  Company Number: BR-PFIZER INC-2008088994

PATIENT
  Sex: Female

DRUGS (1)
  1. CELEBRA [Suspect]
     Route: 048

REACTIONS (7)
  - BLINDNESS [None]
  - COMA [None]
  - HYPERSENSITIVITY [None]
  - RENAL FAILURE [None]
  - SKIN EXFOLIATION [None]
  - SOMNOLENCE [None]
  - SWELLING [None]
